FAERS Safety Report 7724236-7 (Version None)
Quarter: 2011Q3

REPORT INFORMATION
  Report Type: 
  Country: None (occurrence: None)
  Receive Date: 20110901
  Receipt Date: 20110825
  Transmission Date: 20111222
  Serious: Yes (Death, Hospitalization)
  Sender: FDA-Public Use
  Company Number: KR-PFIZER INC-2011198182

PATIENT
  Age: 69 Year
  Sex: Female

DRUGS (2)
  1. AMLODIPINE BESYLATE [Suspect]
     Dosage: 300 MG, SINGLE
     Route: 048
  2. HYDROCHLOROTHIAZIDE [Suspect]
     Dosage: 750 MG, SINGLE
     Route: 048

REACTIONS (8)
  - MULTI-ORGAN FAILURE [None]
  - METABOLIC ACIDOSIS [None]
  - HYPERGLYCAEMIA [None]
  - ELECTROCARDIOGRAM ABNORMAL [None]
  - SUICIDE ATTEMPT [None]
  - KETOACIDOSIS [None]
  - INTENTIONAL OVERDOSE [None]
  - HYPOTENSION [None]
